FAERS Safety Report 5519403-7 (Version None)
Quarter: 2007Q4

REPORT INFORMATION
  Report Type: 
  Country: None (occurrence: None)
  Receive Date: 20071116
  Receipt Date: 20071105
  Transmission Date: 20080405
  Serious: Yes (Death, Hospitalization)
  Sender: FDA-Public Use
  Company Number: JP-AMGEN-US251194

PATIENT
  Sex: Male

DRUGS (6)
  1. ARANESP [Suspect]
     Indication: DIALYSIS
     Route: 042
     Dates: start: 20070705, end: 20070830
  2. PARLODEL [Concomitant]
     Dates: end: 20070830
  3. FUROSEMIDE [Concomitant]
     Dates: end: 20070830
  4. ALFACALCIDOL [Concomitant]
     Dates: end: 20070830
  5. ASPIRIN [Concomitant]
     Dates: end: 20070830
  6. CALCIUM CARBONATE [Concomitant]
     Dates: end: 20070830

REACTIONS (2)
  - CEREBRAL HAEMORRHAGE [None]
  - HYPERTENSION [None]
